FAERS Safety Report 9705113 (Version 3)
Quarter: 2015Q4

REPORT INFORMATION
  Report Type: Spontaneous
  Country: US (occurrence: US)
  Receive Date: 20131122
  Receipt Date: 20151207
  Transmission Date: 20160305
  Serious: Yes (Life-Threatening, Hospitalization, Other)
  Sender: FDA-Public Use
  Company Number: US-ALLERGAN-1318197US

PATIENT
  Age: 47 Year
  Sex: Male

DRUGS (3)
  1. FENTANYL. [Concomitant]
     Active Substance: FENTANYL
     Indication: ANAESTHESIA PROCEDURE
     Dosage: 2 MG, SINGLE
     Route: 042
  2. BOTOX [Suspect]
     Active Substance: ONABOTULINUMTOXINA
     Indication: OESOPHAGEAL ACHALASIA
     Dosage: 90 UNITS, SINGLE
     Route: 030
  3. MIDAZOLAM [Concomitant]
     Active Substance: MIDAZOLAM\MIDAZOLAM HYDROCHLORIDE
     Indication: ANAESTHESIA PROCEDURE
     Dosage: 5 MG, SINGLE
     Route: 042

REACTIONS (3)
  - Anaphylactic reaction [Recovered/Resolved]
  - Off label use [Unknown]
  - Laryngeal oedema [Recovered/Resolved]
